FAERS Safety Report 16204393 (Version 5)
Quarter: 2019Q2

REPORT INFORMATION
  Report Type: Spontaneous
  Country: DE (occurrence: DE)
  Receive Date: 20190416
  Receipt Date: 20190603
  Transmission Date: 20190711
  Serious: Yes (Other)
  Sender: FDA-Public Use
  Company Number: PHHY2019DE084619

PATIENT
  Sex: Female

DRUGS (2)
  1. ENTRESTO [Suspect]
     Active Substance: SACUBITRIL\VALSARTAN
     Indication: PRODUCT USED FOR UNKNOWN INDICATION
     Dosage: 50 (24/26)MG, UNK
     Route: 065
     Dates: start: 201904
  2. NOVAMINSULFON [Concomitant]
     Active Substance: METAMIZOLE
     Indication: OSTEOARTHRITIS
     Dosage: UNK
     Route: 065

REACTIONS (6)
  - Blood glucose abnormal [Recovering/Resolving]
  - Blood glucose fluctuation [Unknown]
  - Palpitations [Recovering/Resolving]
  - Hypotension [Unknown]
  - Dizziness [Recovering/Resolving]
  - Malaise [Unknown]
